FAERS Safety Report 7862708-5 (Version None)
Quarter: 2011Q4

REPORT INFORMATION
  Report Type: 
  Country: None (occurrence: None)
  Receive Date: 20111025
  Receipt Date: 20111010
  Transmission Date: 20120403
  Serious: Yes (Other)
  Sender: FDA-Public Use
  Company Number: US-JNJFOC-20110813247

PATIENT

DRUGS (3)
  1. DACOGEN [Suspect]
     Indication: MYELOID LEUKAEMIA
     Dosage: 20 MG/M2, INTRAVENOUS
     Route: 042
  2. DAUNORUBICIN HCL [Suspect]
     Indication: MYELOID LEUKAEMIA
     Dosage: 60 MG/M2, 1 IN 1 DAY
  3. CYTARABINE [Suspect]
     Indication: MYELOID LEUKAEMIA
     Dosage: 100 MG/M2, 1 IN 1 DAY, INTRAVENOUS
     Route: 042

REACTIONS (3)
  - TOXICITY TO VARIOUS AGENTS [None]
  - COLITIS [None]
  - MUCOSAL INFLAMMATION [None]
